FAERS Safety Report 14321317 (Version 1)
Quarter: 2017Q4

REPORT INFORMATION
  Report Type: Report from Study
  Country: US (occurrence: US)
  Receive Date: 20171223
  Receipt Date: 20171223
  Transmission Date: 20180321
  Serious: Yes (Other)
  Sender: FDA-Public Use
  Company Number: PHEH2017US040979

PATIENT
  Sex: Female

DRUGS (1)
  1. COSENTYX [Suspect]
     Active Substance: SECUKINUMAB
     Indication: ANKYLOSING SPONDYLITIS
     Dosage: 300 MG, QMO
     Route: 058

REACTIONS (5)
  - Viral infection [Recovered/Resolved]
  - Drug ineffective [Unknown]
  - Drug prescribing error [Unknown]
  - Deafness [Not Recovered/Not Resolved]
  - Incorrect dose administered [Unknown]
